FAERS Safety Report 7583845-9 (Version None)
Quarter: 2011Q2

REPORT INFORMATION
  Report Type: 
  Country: None (occurrence: None)
  Receive Date: 20110630
  Receipt Date: 20110623
  Transmission Date: 20111010
  Serious: Yes (Hospitalization)
  Sender: FDA-Public Use
  Company Number: DE-JNJFOC-20110606373

PATIENT
  Age: 67 Year
  Sex: Female

DRUGS (14)
  1. SIMPONI [Suspect]
     Route: 058
     Dates: start: 20110514
  2. FENTANYL [Concomitant]
  3. PANTOPRAZOLE [Concomitant]
  4. SIMPONI [Suspect]
     Indication: RHEUMATOID ARTHRITIS
     Route: 058
     Dates: start: 20110414
  5. FUROSEMIDE [Concomitant]
  6. METOCLOPRAMIDE [Concomitant]
  7. ATACAND [Concomitant]
  8. PREDNISOLONE [Concomitant]
  9. SIMPONI [Suspect]
     Route: 058
     Dates: start: 20110501
  10. CELEBREX [Concomitant]
  11. METOPROLOL TARTRATE [Concomitant]
  12. PLAVIX [Concomitant]
  13. BONIVA [Concomitant]
  14. CREON [Concomitant]

REACTIONS (6)
  - URINARY TRACT INFECTION [None]
  - TORULOPSIS INFECTION [None]
  - WEIGHT INCREASED [None]
  - PHOTOSENSITIVITY REACTION [None]
  - NIGHT SWEATS [None]
  - OEDEMA PERIPHERAL [None]
